FAERS Safety Report 21661067 (Version 2)
Quarter: 2022Q4

REPORT INFORMATION
  Report Type: Spontaneous
  Country: US (occurrence: US)
  Receive Date: 20221130
  Receipt Date: 20221207
  Transmission Date: 20230113
  Serious: No
  Sender: FDA-Public Use
  Company Number: US-TEVA-2022-US-2829963

PATIENT
  Sex: Female

DRUGS (3)
  1. LORAZEPAM [Suspect]
     Active Substance: LORAZEPAM
     Indication: Product used for unknown indication
     Route: 065
  2. LORAZEPAM [Suspect]
     Active Substance: LORAZEPAM
     Indication: Product used for unknown indication
     Route: 065
  3. LORAZEPAM [Suspect]
     Active Substance: LORAZEPAM
     Route: 065

REACTIONS (2)
  - Drug withdrawal syndrome [Not Recovered/Not Resolved]
  - Illness [Not Recovered/Not Resolved]
